FAERS Safety Report 8858763 (Version 1)
Quarter: 2012Q4

REPORT INFORMATION
  Report Type: 
  Country: US (occurrence: US)
  Receive Date: 20121024
  Receipt Date: 20121024
  Transmission Date: 20130627
  Serious: Yes (Disabling, Other)
  Sender: FDA-Public Use
  Company Number: US-NAPPMUNDI-GBR-2012-0011668

PATIENT
  Age: 18 Year
  Sex: Male

DRUGS (1)
  1. MORPHINE SULFATE (SIMILAR TO NDA 19-516) [Suspect]
     Indication: DRUG ABUSE
     Route: 055

REACTIONS (9)
  - Drug abuse [Unknown]
  - Deafness [Recovered/Resolved]
  - Tachycardia [Recovered/Resolved]
  - Renal impairment [Recovered/Resolved]
  - Troponin I increased [Recovered/Resolved]
  - Transaminases increased [Recovered/Resolved]
  - Toxicity to various agents [Recovered/Resolved]
  - Loss of consciousness [Recovered/Resolved]
  - Hypotension [Recovered/Resolved]
